FAERS Safety Report 16858117 (Version 2)
Quarter: 2020Q3

REPORT INFORMATION
  Report Type: Spontaneous
  Country: US (occurrence: US)
  Receive Date: 20190926
  Receipt Date: 20200825
  Transmission Date: 20201102
  Serious: Yes (Hospitalization, Other)
  Sender: FDA-Public Use
  Company Number: US-GILEAD-2019-0429577

PATIENT
  Age: 70 Year
  Sex: Female

DRUGS (27)
  1. ATRIPLA [Suspect]
     Active Substance: EFAVIRENZ\EMTRICITABINE\TENOFOVIR DISOPROXIL FUMARATE
     Indication: HIV INFECTION
     Dosage: UNK
     Route: 048
     Dates: start: 2006
  2. NORVIR [Concomitant]
     Active Substance: RITONAVIR
  3. PREZISTA [Concomitant]
     Active Substance: DARUNAVIR ETHANOLATE
  4. SUSTIVA [Concomitant]
     Active Substance: EFAVIRENZ
  5. ALBUTEROL [SALBUTAMOL SULFATE] [Concomitant]
     Active Substance: ALBUTEROL SULFATE
  6. AMOXICILLIN. [Concomitant]
     Active Substance: AMOXICILLIN
  7. PANTOPRAZOLE [Concomitant]
     Active Substance: PANTOPRAZOLE
  8. MONTELUKAST [Concomitant]
     Active Substance: MONTELUKAST SODIUM
  9. EMTRIVA [Concomitant]
     Active Substance: EMTRICITABINE
  10. METHYLPREDNISOLONE. [Concomitant]
     Active Substance: METHYLPREDNISOLONE
  11. ATRIPLA [Suspect]
     Active Substance: EFAVIRENZ\EMTRICITABINE\TENOFOVIR DISOPROXIL FUMARATE
     Dosage: UNK
     Route: 048
     Dates: start: 2008, end: 201309
  12. TEMAZEPAM. [Concomitant]
     Active Substance: TEMAZEPAM
  13. TIVICAY [Concomitant]
     Active Substance: DOLUTEGRAVIR SODIUM
  14. LEVOFLOXACIN. [Concomitant]
     Active Substance: LEVOFLOXACIN
  15. CALCIUM ACETATE. [Concomitant]
     Active Substance: CALCIUM ACETATE
  16. CIPROFLOXACIN. [Concomitant]
     Active Substance: CIPROFLOXACIN
  17. IPRATROPIUM [Concomitant]
     Active Substance: IPRATROPIUM
  18. LIDOCAINE. [Concomitant]
     Active Substance: LIDOCAINE
  19. PRAVASTATIN. [Concomitant]
     Active Substance: PRAVASTATIN
  20. ATRIPLA [Suspect]
     Active Substance: EFAVIRENZ\EMTRICITABINE\TENOFOVIR DISOPROXIL FUMARATE
     Dosage: UNK
     Route: 048
     Dates: start: 2008, end: 201304
  21. DOXYCYCLINE. [Concomitant]
     Active Substance: DOXYCYCLINE
  22. TRELEGY ELLIPTA [Concomitant]
     Active Substance: FLUTICASONE FUROATE\UMECLIDINIUM BROMIDE\VILANTEROL TRIFENATATE
  23. PEG 3350 + ELECTROLYTES [Concomitant]
  24. PREZISTA [Concomitant]
     Active Substance: DARUNAVIR ETHANOLATE
  25. CEFDINIR. [Concomitant]
     Active Substance: CEFDINIR
  26. INTELENCE [Concomitant]
     Active Substance: ETRAVIRINE
  27. CEFRIAXONE [Concomitant]
     Active Substance: CEFTRIAXONE

REACTIONS (12)
  - Loss of personal independence in daily activities [Unknown]
  - Emotional distress [Not Recovered/Not Resolved]
  - Anxiety [Not Recovered/Not Resolved]
  - Economic problem [Not Recovered/Not Resolved]
  - Renal failure [Not Recovered/Not Resolved]
  - Decreased activity [Unknown]
  - Pain [Not Recovered/Not Resolved]
  - End stage renal disease [Unknown]
  - Renal disorder [Not Recovered/Not Resolved]
  - Anhedonia [Not Recovered/Not Resolved]
  - Fatigue [Unknown]
  - Quality of life decreased [Unknown]

NARRATIVE: CASE EVENT DATE: 201309
